FAERS Safety Report 8272516-1 (Version None)
Quarter: 2012Q2

REPORT INFORMATION
  Report Type: 
  Country: None (occurrence: None)
  Receive Date: 20120410
  Receipt Date: 20120402
  Transmission Date: 20120825
  Serious: Yes (Life-Threatening, Hospitalization, Disabling)
  Sender: FDA-Public Use
  Company Number: CA-FRI-1000029697

PATIENT
  Age: 50 Year
  Sex: Male
  Weight: 81 kg

DRUGS (11)
  1. CLONAZEPAM [Concomitant]
  2. PANTOPRAZOLE SODIUM [Concomitant]
  3. TEVA-PANTOPRAZOLE [Concomitant]
  4. TOPIRAMATE [Concomitant]
  5. KEMADRIN [Concomitant]
  6. ESCITALOPRAM [Suspect]
  7. PMS-PROCYCLIDINE [Concomitant]
  8. ZYPREXA [Concomitant]
  9. CLONAZEPAM [Concomitant]
  10. ESCITALOPRAM [Suspect]
  11. CYMBALTA [Concomitant]

REACTIONS (5)
  - CONDITION AGGRAVATED [None]
  - AGGRESSION [None]
  - CONFUSIONAL STATE [None]
  - OVERDOSE [None]
  - CARDIAC DISORDER [None]
